FAERS Safety Report 5454832-1 (Version None)
Quarter: 2007Q3

REPORT INFORMATION
  Report Type: 
  Country: None (occurrence: None)
  Receive Date: 20070917
  Receipt Date: 20061026
  Transmission Date: 20080115
  Serious: Yes (Other)
  Sender: FDA-Public Use
  Company Number: US-ASTRAZENECA-2006UW17734

PATIENT
  Age: 36 Year
  Sex: Female
  Weight: 45.4 kg

DRUGS (4)
  1. SEROQUEL [Suspect]
     Indication: BIPOLAR DISORDER
     Route: 048
     Dates: start: 20060628, end: 20060101
  2. SEROQUEL [Suspect]
     Route: 048
     Dates: start: 20060101, end: 20060901
  3. LEXAPRO [Concomitant]
     Indication: BIPOLAR DISORDER
     Route: 048
     Dates: start: 20060703
  4. REMERON [Concomitant]
     Indication: BIPOLAR DISORDER
     Route: 048
     Dates: start: 20060822, end: 20061017

REACTIONS (10)
  - ABASIA [None]
  - APHASIA [None]
  - BRAIN DAMAGE [None]
  - CONVULSION [None]
  - DYSKINESIA [None]
  - ILL-DEFINED DISORDER [None]
  - INCONTINENCE [None]
  - MENTAL IMPAIRMENT [None]
  - PSYCHOMOTOR SKILLS IMPAIRED [None]
  - TREMOR [None]
